FAERS Safety Report 20227718 (Version 1)
Quarter: 2021Q4

REPORT INFORMATION
  Report Type: Spontaneous
  Country: US (occurrence: US)
  Receive Date: 20211224
  Receipt Date: 20211224
  Transmission Date: 20220303
  Serious: Yes (Hospitalization, Other)
  Sender: FDA-Public Use
  Company Number: US-TAKEDA-2021TUS080117

PATIENT
  Age: 73 Year
  Sex: Female
  Weight: 63.492 kg

DRUGS (1)
  1. GAMMAGARD LIQUID [Suspect]
     Active Substance: HUMAN IMMUNOGLOBULIN G
     Indication: Immune system disorder
     Dosage: 30 MILLIGRAM, MONTHLY
     Route: 042

REACTIONS (7)
  - Illness [Unknown]
  - Tongue disorder [Unknown]
  - Headache [Unknown]
  - Angina pectoris [Unknown]
  - Chills [Unknown]
  - Tremor [Unknown]
  - Infusion related reaction [Unknown]

NARRATIVE: CASE EVENT DATE: 20211214
